FAERS Safety Report 7105548-7 (Version None)
Quarter: 2010Q4

REPORT INFORMATION
  Report Type: 
  Country: None (occurrence: None)
  Receive Date: 20101116
  Receipt Date: 20101110
  Transmission Date: 20110411
  Serious: Yes (Other)
  Sender: FDA-Public Use
  Company Number: US-JNJCH-2010022261

PATIENT
  Sex: Male
  Weight: 74.8 kg

DRUGS (1)
  1. ROGAINE [Suspect]
     Indication: ALOPECIA
     Dosage: TEXT:UNKNOWN
     Route: 061
     Dates: start: 20100922, end: 20100928

REACTIONS (4)
  - APPLICATION SITE RASH [None]
  - HYPERSENSITIVITY [None]
  - PAIN OF SKIN [None]
  - RASH [None]
